FAERS Safety Report 6694212-4 (Version None)
Quarter: 2010Q2

REPORT INFORMATION
  Report Type: 
  Country: None (occurrence: None)
  Receive Date: 20100423
  Receipt Date: 20100409
  Transmission Date: 20101027
  Serious: Yes (Hospitalization)
  Sender: FDA-Public Use
  Company Number: FR-B.I. PHARMACEUTICALS,INC./RIDGEFIELD-2010-DE-02160BY

PATIENT
  Sex: Female

DRUGS (6)
  1. PRITOR PLUS [Suspect]
     Route: 048
     Dates: start: 20091201, end: 20091218
  2. METFORMINE BIOGARAN [Suspect]
     Route: 048
     Dates: start: 20091201, end: 20091218
  3. TAHOR [Concomitant]
     Route: 065
  4. KARDEGIC [Concomitant]
     Route: 065
  5. EUPANTOL [Concomitant]
     Route: 065
  6. SPIRIVA [Concomitant]
     Route: 065

REACTIONS (2)
  - LACTIC ACIDOSIS [None]
  - RENAL FAILURE ACUTE [None]
